FAERS Safety Report 17440094 (Version 1)
Quarter: 2020Q1

REPORT INFORMATION
  Report Type: Spontaneous
  Country: US (occurrence: US)
  Receive Date: 20200205
  Receipt Date: 20200205
  Transmission Date: 20200409
  Serious: Yes (Hospitalization)
  Sender: FDA-Public Use
  Company Number: None

PATIENT
  Age: 38 Year
  Sex: Male

DRUGS (6)
  1. PAXIL [Concomitant]
     Active Substance: PAROXETINE HYDROCHLORIDE
  2. HUMIRA [Suspect]
     Active Substance: ADALIMUMAB
     Indication: CROHN^S DISEASE
     Route: 058
     Dates: start: 20181015
  3. METHOTREXATE. [Concomitant]
     Active Substance: METHOTREXATE
  4. FOLIC ACID. [Concomitant]
     Active Substance: FOLIC ACID
  5. ZANTAC [Concomitant]
     Active Substance: RANITIDINE HYDROCHLORIDE
  6. ZYRTEC ALLGY [Concomitant]

REACTIONS (2)
  - Crohn^s disease [None]
  - Therapy cessation [None]
